FAERS Safety Report 18541467 (Version 1)
Quarter: 2020Q4

REPORT INFORMATION
  Report Type: Report from Study
  Country: US (occurrence: US)
  Receive Date: 20201124
  Receipt Date: 20201124
  Transmission Date: 20210114
  Serious: Yes (Other)
  Sender: FDA-Public Use
  Company Number: US-UCBSA-2020046960

PATIENT
  Age: 24 Year
  Sex: Male

DRUGS (1)
  1. MIDAZOLAM. [Suspect]
     Active Substance: MIDAZOLAM
     Indication: SEIZURE CLUSTER
     Dosage: GIVES A DOSE IN EACH NOSTRIL AS A DOSE
     Route: 045

REACTIONS (6)
  - Agitation [Not Recovered/Not Resolved]
  - Burning sensation [Not Recovered/Not Resolved]
  - Choking [Not Recovered/Not Resolved]
  - Oxygen saturation decreased [Not Recovered/Not Resolved]
  - Retching [Not Recovered/Not Resolved]
  - Drug ineffective [Unknown]

NARRATIVE: CASE EVENT DATE: 20201013
